FAERS Safety Report 4399829-8 (Version None)
Quarter: 2004Q3

REPORT INFORMATION
  Report Type: 
  Country: None (occurrence: None)
  Receive Date: 20040714
  Receipt Date: 20040628
  Transmission Date: 20050211
  Serious: Yes (Hospitalization)
  Sender: FDA-Public Use
  Company Number: US_0406103940

PATIENT
  Age: 6 Month
  Sex: Male

DRUGS (1)
  1. KEFLEX [Suspect]
     Indication: URINARY TRACT INFECTION

REACTIONS (6)
  - BLOOD URINE [None]
  - DRUG INEFFECTIVE [None]
  - GASTROINTESTINAL DISORDER [None]
  - IMMUNODEFICIENCY [None]
  - VOMITING [None]
  - WHITE BLOOD CELL DISORDER [None]
